FAERS Safety Report 25169546 (Version 2)
Quarter: 2025Q3

REPORT INFORMATION
  Report Type: Spontaneous
  Country: US (occurrence: US)
  Receive Date: 20250407
  Receipt Date: 20250912
  Transmission Date: 20251021
  Serious: No
  Sender: MERCK SHARP & DOHME LLC
  Company Number: US-009507513-2264224

PATIENT
  Sex: Female

DRUGS (6)
  1. SOTATERCEPT [Suspect]
     Active Substance: SOTATERCEPT
     Indication: Pulmonary arterial hypertension
     Route: 058
  2. SOTATERCEPT [Suspect]
     Active Substance: SOTATERCEPT
     Dosage: CONTINUE AT CURRENT WINREVAIR DOSE OF 0.3MG/KG BUT Q4WK DUE TO LACK OF STUDIES IN CONGENITAL PATI...
     Route: 058
  3. SOTATERCEPT [Suspect]
     Active Substance: SOTATERCEPT
  4. SOTATERCEPT [Suspect]
     Active Substance: SOTATERCEPT
  5. TREPROSTINIL DIOLAMINE [Suspect]
     Active Substance: TREPROSTINIL DIOLAMINE
     Indication: Pulmonary arterial hypertension
     Route: 048
     Dates: start: 202103
  6. AMBRISENTAN [Concomitant]
     Active Substance: AMBRISENTAN

REACTIONS (5)
  - Peripheral swelling [Unknown]
  - Injection site inflammation [Recovered/Resolved]
  - Platelet count abnormal [Unknown]
  - Injection site rash [Recovered/Resolved]
  - Injection site pruritus [Recovered/Resolved]
